FAERS Safety Report 6449293-X (Version None)
Quarter: 2009Q4

REPORT INFORMATION
  Report Type: 
  Country: None (occurrence: None)
  Receive Date: 20091112
  Receipt Date: 20090821
  Transmission Date: 20100525
  Serious: Yes (Other)
  Sender: FDA-Public Use
  Company Number: E-09-295

PATIENT
  Sex: Female

DRUGS (4)
  1. AMITRIPTYLINE            (QUALITEST) [Suspect]
     Indication: SOMNOLENCE
     Dosage: ONE P.O. HS
     Route: 048
     Dates: start: 19990101
  2. SYNTHROID [Concomitant]
  3. NEXIUM [Concomitant]
  4. MOBIC [Concomitant]

REACTIONS (3)
  - DENTAL CARIES [None]
  - DRY MOUTH [None]
  - NAUSEA [None]
